FAERS Safety Report 5123759-7 (Version None)
Quarter: 2006Q4

REPORT INFORMATION
  Report Type: 
  Country: None (occurrence: None)
  Receive Date: 20061010
  Receipt Date: 20060703
  Transmission Date: 20070319
  Serious: Yes (Hospitalization)
  Sender: FDA-Public Use
  Company Number: AU-ROCHE-453851

PATIENT
  Age: 22 Year
  Sex: Male
  Weight: 90 kg

DRUGS (1)
  1. ACCUTANE [Suspect]
     Indication: LIVER ABSCESS
     Route: 048
     Dates: start: 20060515, end: 20060702

REACTIONS (2)
  - BLOOD CREATINE PHOSPHOKINASE INCREASED [None]
  - TROPONIN INCREASED [None]
